FAERS Safety Report 17900148 (Version 1)
Quarter: 2020Q2

REPORT INFORMATION
  Report Type: Report from Study
  Country: US (occurrence: US)
  Receive Date: 20200616
  Receipt Date: 20200616
  Transmission Date: 20200714
  Serious: Yes (Other)
  Sender: FDA-Public Use
  Company Number: US-ROCHE-2617814

PATIENT
  Age: 65 Year
  Sex: Female
  Weight: 118.04 kg

DRUGS (8)
  1. HYDROCHLOROTHIAZIDE. [Concomitant]
     Active Substance: HYDROCHLOROTHIAZIDE
     Indication: HYPERTENSION
     Route: 048
  2. SYNTHROID [Concomitant]
     Active Substance: LEVOTHYROXINE SODIUM
     Indication: HYPERTHYROIDISM
     Route: 048
  3. DALFAMPRIDINE. [Concomitant]
     Active Substance: DALFAMPRIDINE
     Route: 048
  4. CRANBERRY [VACCINIUM SPP.] [Concomitant]
     Route: 048
  5. OCREVUS [Suspect]
     Active Substance: OCRELIZUMAB
     Indication: RELAPSING MULTIPLE SCLEROSIS
     Route: 042
     Dates: start: 2017, end: 201912
  6. INSULIN [Concomitant]
     Active Substance: INSULIN NOS
  7. METHOTREXATE. [Concomitant]
     Active Substance: METHOTREXATE
     Indication: RHEUMATOID ARTHRITIS
     Route: 065
     Dates: start: 202003
  8. HYDROXYCHLOROQUINE [Concomitant]
     Active Substance: HYDROXYCHLOROQUINE
     Indication: RHEUMATOID ARTHRITIS
     Route: 065
     Dates: end: 202003

REACTIONS (8)
  - Urinary incontinence [Recovered/Resolved]
  - Arthralgia [Recovering/Resolving]
  - Therapeutic response shortened [Not Recovered/Not Resolved]
  - Fatigue [Recovered/Resolved]
  - Urinary tract infection [Recovered/Resolved]
  - Hepatic enzyme abnormal [Recovered/Resolved]
  - Confusional state [Not Recovered/Not Resolved]
  - Memory impairment [Not Recovered/Not Resolved]

NARRATIVE: CASE EVENT DATE: 202002
